FAERS Safety Report 4368946-0 (Version None)
Quarter: 2004Q2

REPORT INFORMATION
  Report Type: 
  Country: None (occurrence: None)
  Receive Date: 20040525
  Receipt Date: 20040512
  Transmission Date: 20050107
  Serious: Yes (Disabling, Other)
  Sender: FDA-Public Use
  Company Number: 2004032181

PATIENT
  Sex: Female

DRUGS (11)
  1. DILANTIN KAPSEAL [Suspect]
     Indication: CONVULSION
     Dosage: 400 MG (100 MG, 3 IN 1 D), ORAL
     Route: 048
  2. ALL OTHER NON-THERAPEUTIC PRODUCTS (ALL OTHER NON-THERAPEUTIC PRODUCTS [Suspect]
     Indication: ILL-DEFINED DISORDER
  3. TIZANIDINE HCL [Concomitant]
  4. BACLOFEN [Concomitant]
  5. NITROFURANTOIN [Concomitant]
  6. PHENOBARBITAL TAB [Concomitant]
  7. DOCUSATE SODIUM (DOCUSATE SODIUM) [Concomitant]
  8. IRON (IRON) [Concomitant]
  9. ALENDRONATE SODIUM [Concomitant]
  10. ANTACIDS (ANTACIDS) [Concomitant]
  11. ALL OTHER THERAPEUTIC PRODUCTS (ALL OTHER THERAPEUTIC PRODUCTS) [Concomitant]

REACTIONS (8)
  - ANAEMIA [None]
  - ANTICONVULSANT DRUG LEVEL DECREASED [None]
  - CONSTIPATION [None]
  - DIPLEGIA [None]
  - FOOD INTERACTION [None]
  - MENTAL RETARDATION SEVERITY UNSPECIFIED [None]
  - OEDEMA PERIPHERAL [None]
  - OSTEOPOROSIS [None]
